FAERS Safety Report 24209874 (Version 2)
Quarter: 2024Q3

REPORT INFORMATION
  Report Type: Spontaneous
  Country: BR (occurrence: BR)
  Receive Date: 20240814
  Receipt Date: 20240829
  Transmission Date: 20241017
  Serious: Yes (Hospitalization, Other)
  Sender: AMGEN
  Company Number: BR-AMGEN-BRASP2024157379

PATIENT
  Age: 71 Year
  Sex: Female

DRUGS (3)
  1. PROLIA [Suspect]
     Active Substance: DENOSUMAB
     Indication: Osteoporosis
     Dosage: UNK, Q6MO
     Route: 065
     Dates: start: 202208, end: 2022
  2. PROLIA [Suspect]
     Active Substance: DENOSUMAB
     Indication: Arthritis
     Dosage: UNK
     Route: 065
     Dates: start: 20240804
  3. NORTRIPTYLINE [Concomitant]
     Active Substance: NORTRIPTYLINE
     Dosage: 25 MILLIGRAM

REACTIONS (6)
  - Gallbladder disorder [Unknown]
  - Surgery [Recovered/Resolved]
  - Osteoporosis [Unknown]
  - Osteoarthritis [Unknown]
  - Product storage error [Unknown]
  - Circumstance or information capable of leading to medication error [Unknown]
